APPROVED DRUG PRODUCT: NIACIN
Active Ingredient: NIACIN
Strength: 1GM
Dosage Form/Route: TABLET, EXTENDED RELEASE;ORAL
Application: A214428 | Product #002
Applicant: BEIJING SCIECURE PHARMACEUTICAL CO LTD
Approved: Nov 22, 2021 | RLD: No | RS: No | Type: DISCN